FAERS Safety Report 15744554 (Version 1)
Quarter: 2018Q4

REPORT INFORMATION
  Report Type: Spontaneous
  Country: US (occurrence: US)
  Receive Date: 20181220
  Receipt Date: 20181220
  Transmission Date: 20190205
  Serious: No
  Sender: FDA-Public Use
  Company Number: US-BAUSCH-BL-2018-034063

PATIENT
  Age: 41 Year
  Sex: Female

DRUGS (6)
  1. ALDARA [Suspect]
     Active Substance: IMIQUIMOD
     Indication: VULVAR DYSPLASIA
     Route: 061
     Dates: start: 20180912, end: 2018
  2. ALDARA [Suspect]
     Active Substance: IMIQUIMOD
     Dosage: HALF PACKET OF SUSPECT ONCE OR TWICE A WEEK
     Route: 061
     Dates: start: 20181129, end: 20181201
  3. ALDARA [Suspect]
     Active Substance: IMIQUIMOD
     Indication: OFF LABEL USE
     Route: 061
     Dates: start: 2018, end: 2018
  4. FISH OIL [Concomitant]
     Active Substance: FISH OIL
     Indication: PRODUCT USED FOR UNKNOWN INDICATION
     Route: 048
  5. ALDARA [Suspect]
     Active Substance: IMIQUIMOD
     Indication: PAPILLOMA VIRAL INFECTION
     Route: 061
     Dates: start: 2018, end: 2018
  6. VITAMIN D3 [Concomitant]
     Active Substance: CHOLECALCIFEROL
     Indication: PRODUCT USED FOR UNKNOWN INDICATION
     Route: 048

REACTIONS (20)
  - Poor peripheral circulation [Not Recovered/Not Resolved]
  - Limb discomfort [Not Recovered/Not Resolved]
  - Muscle spasms [Not Recovered/Not Resolved]
  - Musculoskeletal pain [Not Recovered/Not Resolved]
  - Myalgia [Not Recovered/Not Resolved]
  - Intentional dose omission [Recovered/Resolved]
  - Therapy cessation [Recovered/Resolved]
  - Sleep disorder [Recovering/Resolving]
  - Back pain [Not Recovered/Not Resolved]
  - Off label use [Recovered/Resolved]
  - Dysphonia [Not Recovered/Not Resolved]
  - Burning sensation [Not Recovered/Not Resolved]
  - Tendon pain [Not Recovered/Not Resolved]
  - Arthralgia [Not Recovered/Not Resolved]
  - Nausea [Not Recovered/Not Resolved]
  - Pain [Not Recovered/Not Resolved]
  - Flushing [Not Recovered/Not Resolved]
  - Ligament pain [Not Recovered/Not Resolved]
  - Feeling abnormal [Not Recovered/Not Resolved]
  - Paraesthesia [Not Recovered/Not Resolved]

NARRATIVE: CASE EVENT DATE: 2018
